FAERS Safety Report 5823037-4 (Version None)
Quarter: 2008Q3

REPORT INFORMATION
  Report Type: 
  Country: None (occurrence: None)
  Receive Date: 20080725
  Receipt Date: 20070824
  Transmission Date: 20090109
  Serious: No
  Sender: FDA-Public Use
  Company Number: US-AMGEN-KDL240437

PATIENT
  Sex: Female
  Weight: 102.2 kg

DRUGS (6)
  1. PROCRIT [Suspect]
     Indication: RENAL FAILURE CHRONIC
     Dates: start: 20040101, end: 20050301
  2. COREG [Concomitant]
  3. TRICOR [Concomitant]
  4. ACTOS [Concomitant]
  5. LASIX [Concomitant]
  6. NIFEREX [Concomitant]

REACTIONS (2)
  - ASTHENIA [None]
  - BLOOD COUNT ABNORMAL [None]
